FAERS Safety Report 17501376 (Version 2)
Quarter: 2020Q3

REPORT INFORMATION
  Report Type: Report from Study
  Country: FR (occurrence: FR)
  Receive Date: 20200305
  Receipt Date: 20200826
  Transmission Date: 20201102
  Serious: Yes (Hospitalization)
  Sender: FDA-Public Use
  Company Number: FR-JNJFOC-20200234679

PATIENT
  Age: 32 Year
  Sex: Female
  Weight: 92 kg

DRUGS (4)
  1. REMICADE [Suspect]
     Active Substance: INFLIXIMAB
     Indication: PRODUCT USED FOR UNKNOWN INDICATION
     Dosage: 450 MG, EVERY 2 MONTHS
     Route: 042
     Dates: start: 20180801
  2. INFLECTRA [Suspect]
     Active Substance: INFLIXIMAB-DYYB
     Indication: COLITIS ULCERATIVE
     Dates: start: 20180801
  3. VENTOLINE [SALBUTAMOL] [Concomitant]
     Active Substance: ALBUTEROL SULFATE
     Indication: ASTHMA
     Dosage: UNK
     Route: 055
  4. SERETIDE [Concomitant]
     Active Substance: FLUTICASONE PROPIONATE\SALMETEROL XINAFOATE
     Indication: ASTHMA
     Dosage: UNK
     Route: 055

REACTIONS (2)
  - Asthma [Recovered/Resolved]
  - Lung disorder [Recovered/Resolved]

NARRATIVE: CASE EVENT DATE: 20190223
